FAERS Safety Report 8528259 (Version 4)
Quarter: 2013Q2

REPORT INFORMATION
  Report Type: Spontaneous
  Country: US (occurrence: US)
  Receive Date: 20120424
  Receipt Date: 20130618
  Transmission Date: 20140414
  Serious: Yes (Other)
  Sender: FDA-Public Use
  Company Number: US-ROCHE-784229

PATIENT
  Age: 21 Year
  Sex: Female
  Weight: 52.21 kg

DRUGS (5)
  1. ACCUTANE [Suspect]
     Indication: ACNE
     Route: 048
     Dates: start: 20020208, end: 20020828
  2. ACCUTANE [Suspect]
     Route: 048
  3. AMNESTEEM [Suspect]
     Indication: ACNE
     Route: 065
     Dates: start: 20030523, end: 20031206
  4. ORTHO TRI-CYCLEN [Concomitant]
  5. OVCON [Concomitant]

REACTIONS (6)
  - Colitis ulcerative [Unknown]
  - Inflammatory bowel disease [Unknown]
  - Stress [Unknown]
  - Depression [Unknown]
  - Dry skin [Unknown]
  - Lip dry [Unknown]
